FAERS Safety Report 12215048 (Version 1)
Quarter: 2016Q1

REPORT INFORMATION
  Report Type: Spontaneous
  Country: US (occurrence: US)
  Receive Date: 20160328
  Receipt Date: 20160328
  Transmission Date: 20160526
  Serious: No
  Sender: FDA-Public Use
  Company Number: US-WARNER CHILCOTT, LLC-1049819

PATIENT
  Age: 79 Year
  Sex: Female

DRUGS (3)
  1. ASA [Concomitant]
     Active Substance: ASPIRIN
  2. ESTRACE [Suspect]
     Active Substance: ESTRADIOL
     Indication: VULVOVAGINAL DRYNESS
     Route: 067
     Dates: start: 2012, end: 20151020
  3. ESTRACE [Suspect]
     Active Substance: ESTRADIOL
     Route: 067

REACTIONS (3)
  - Arthropathy [Unknown]
  - Hyperhidrosis [Unknown]
  - Vaginal haemorrhage [Unknown]
